FAERS Safety Report 9121470 (Version 1)
Quarter: 2013Q1

REPORT INFORMATION
  Report Type: Spontaneous
  Country: BR (occurrence: BR)
  Receive Date: 20130227
  Receipt Date: 20130227
  Transmission Date: 20140127
  Serious: Yes (Hospitalization, Other)
  Sender: FDA-Public Use
  Company Number: BR-AMGEN-BRASP2013012965

PATIENT
  Age: 53 Year
  Sex: Female
  Weight: 95 kg

DRUGS (2)
  1. ENBREL [Suspect]
     Indication: RHEUMATOID ARTHRITIS
     Dosage: UNK
     Dates: start: 200812, end: 200902
  2. GLIFAGE [Concomitant]
     Indication: BLOOD GLUCOSE INCREASED
     Dosage: UNK
     Dates: start: 2003

REACTIONS (6)
  - Arthritis [Unknown]
  - Swelling [Unknown]
  - Hyperglycaemia [Unknown]
  - Pyrexia [Unknown]
  - Headache [Unknown]
  - Nasopharyngitis [Unknown]
